FAERS Safety Report 20540540 (Version 1)
Quarter: 2022Q1

REPORT INFORMATION
  Report Type: Report from Study
  Country: DE (occurrence: None)
  Receive Date: 20220302
  Receipt Date: 20220302
  Transmission Date: 20220423
  Serious: Yes (Hospitalization)
  Sender: FDA-Public Use
  Company Number: DE-ROCHE-3034768

PATIENT
  Age: 77 Year
  Sex: Male
  Weight: 77 kg

DRUGS (3)
  1. OBINUTUZUMAB [Suspect]
     Active Substance: OBINUTUZUMAB
     Indication: Chronic lymphocytic leukaemia
     Dosage: LAST DOSE PRIOR TO SAE 10/JAN/2019 ?LAST DOSE OF 1000 MG
     Route: 065
     Dates: start: 20190110
  2. VENETOCLAX [Suspect]
     Active Substance: VENETOCLAX
     Indication: Chronic lymphocytic leukaemia
     Dosage: LAST DOSE PRIOR TO SAE 25/JUL/2019 WITH LAST DOSE OF 400 MG
     Route: 065
     Dates: start: 20190628
  3. PANTOPRAZOLE [Concomitant]
     Active Substance: PANTOPRAZOLE
     Route: 048
     Dates: start: 20201214, end: 20210917

REACTIONS (2)
  - Enlarged uvula [Recovered/Resolved with Sequelae]
  - Epiglottic cyst [Recovered/Resolved with Sequelae]

NARRATIVE: CASE EVENT DATE: 20201214
